FAERS Safety Report 8432366-X (Version None)
Quarter: 2012Q2

REPORT INFORMATION
  Report Type: 
  Country: None (occurrence: None)
  Receive Date: 20120606
  Receipt Date: 20120524
  Transmission Date: 20120825
  Serious: Yes (Hospitalization, Other)
  Sender: FDA-Public Use
  Company Number: 2012-2231

PATIENT
  Sex: Female

DRUGS (10)
  1. SOMATULINE AUTOSOLUTION 60MG (LANREOTIDE AUTOGEL) (LANREOTIDE) [Suspect]
  2. LISINOPRIL [Concomitant]
  3. NITROFURANTOIN [Concomitant]
  4. SOMATULINE AUTOSOLUTION 60MG (LANREOTIDE AUTOGEL) (LANREOTIDE) [Suspect]
  5. SOMATULINE AUTOSOLUTION 60MG (LANREOTIDE AUTOGEL) (LANREOTIDE) [Suspect]
     Indication: PANCREATIC NEUROENDOCRINE TUMOUR
     Dosage: 60 MG (60 MG, 1 IN 28 D) SUBCUTANEOUS
     Route: 058
  6. SUTENT (SU 11248) [Concomitant]
  7. SOMATULINE AUTOSOLUTION 60MG (LANREOTIDE AUTOGEL) (LANREOTIDE) [Suspect]
  8. PANCREASE (PANCREATIN) [Concomitant]
  9. OMEPRAZOLE [Concomitant]
  10. NOVOLOG [Concomitant]

REACTIONS (1)
  - SPINAL FRACTURE [None]
